FAERS Safety Report 20045135 (Version 1)
Quarter: 2021Q4

REPORT INFORMATION
  Report Type: Spontaneous
  Country: US (occurrence: US)
  Receive Date: 20211108
  Receipt Date: 20211108
  Transmission Date: 20220303
  Serious: Yes (Other)
  Sender: FDA-Public Use
  Company Number: US-DSPHARMA-2021SUN004201

PATIENT
  Age: 53 Year
  Sex: Female

DRUGS (8)
  1. LATUDA [Suspect]
     Active Substance: LURASIDONE HYDROCHLORIDE
     Indication: Product used for unknown indication
     Dosage: UNK
     Route: 048
     Dates: start: 20211008, end: 20211026
  2. ALLOPURINOL [Concomitant]
     Active Substance: ALLOPURINOL
  3. METOPROLOL [Concomitant]
     Active Substance: METOPROLOL
  4. GABAPENTIN [Concomitant]
     Active Substance: GABAPENTIN
  5. LISINOPRIL [Concomitant]
     Active Substance: LISINOPRIL
  6. OMEPRAZOLE [Concomitant]
     Active Substance: OMEPRAZOLE
  7. FUROSEMIDE [Concomitant]
     Active Substance: FUROSEMIDE
  8. LACTULOSE [Concomitant]
     Active Substance: LACTULOSE

REACTIONS (8)
  - Chronic kidney disease [Unknown]
  - Diabetes mellitus [Unknown]
  - Rash vesicular [Unknown]
  - Skin exfoliation [Unknown]
  - Blister rupture [Unknown]
  - Crying [Unknown]
  - Depression [Unknown]
  - Increased appetite [Unknown]

NARRATIVE: CASE EVENT DATE: 20211023
